FAERS Safety Report 12728475 (Version 3)
Quarter: 2016Q4

REPORT INFORMATION
  Report Type: Spontaneous
  Country: US (occurrence: US)
  Receive Date: 20160909
  Receipt Date: 20161004
  Transmission Date: 20170207
  Serious: No
  Sender: FDA-Public Use
  Company Number: US-PFIZER INC-2016423331

PATIENT
  Age: 13 Year
  Sex: Male
  Weight: 62 kg

DRUGS (6)
  1. DEPAKOTE [Concomitant]
     Active Substance: DIVALPROEX SODIUM
     Indication: MOOD ALTERED
     Dosage: 2X/DAY (250MG IN THE MORNING 750 MG AT NIGHT)
     Dates: start: 201501, end: 201608
  2. GEODON [Suspect]
     Active Substance: ZIPRASIDONE HYDROCHLORIDE\ZIPRASIDONE MESYLATE
     Indication: AGGRESSION
  3. GEODON [Suspect]
     Active Substance: ZIPRASIDONE HYDROCHLORIDE\ZIPRASIDONE MESYLATE
     Indication: MOOD ALTERED
     Dosage: 160 MG, 1X/DAY (AT NIGHT)
     Route: 048
     Dates: start: 201608
  4. RISPERDAL [Concomitant]
     Active Substance: RISPERIDONE
     Indication: MOOD ALTERED
     Dosage: 1 MG, 1X/DAY (IN THE MORNING)
     Route: 048
     Dates: start: 2015, end: 201608
  5. RISPERDAL [Concomitant]
     Active Substance: RISPERIDONE
     Indication: AGGRESSION
  6. DEPAKOTE [Concomitant]
     Active Substance: DIVALPROEX SODIUM
     Indication: AGGRESSION

REACTIONS (15)
  - Drug administered to patient of inappropriate age [Unknown]
  - Tremor [Not Recovered/Not Resolved]
  - Irritability [Not Recovered/Not Resolved]
  - Chapped lips [Not Recovered/Not Resolved]
  - Chills [Not Recovered/Not Resolved]
  - Hunger [Unknown]
  - Drug intolerance [Unknown]
  - Dry mouth [Not Recovered/Not Resolved]
  - Cardiac disorder [Not Recovered/Not Resolved]
  - Anxiety [Not Recovered/Not Resolved]
  - Condition aggravated [Unknown]
  - Dizziness [Not Recovered/Not Resolved]
  - Dyskinesia [Not Recovered/Not Resolved]
  - Toothache [Not Recovered/Not Resolved]
  - Tic [Not Recovered/Not Resolved]

NARRATIVE: CASE EVENT DATE: 201609
